FAERS Safety Report 12522438 (Version 1)
Quarter: 2016Q3

REPORT INFORMATION
  Report Type: Spontaneous
  Country: US (occurrence: US)
  Receive Date: 20160701
  Receipt Date: 20160701
  Transmission Date: 20161109
  Serious: No
  Sender: FDA-Public Use
  Company Number: US-FRI-1000085053

PATIENT
  Sex: Female

DRUGS (2)
  1. OLANZAPINE. [Suspect]
     Active Substance: OLANZAPINE
  2. VRAYLAR [Suspect]
     Active Substance: CARIPRAZINE

REACTIONS (1)
  - Agitation [Unknown]
